FAERS Safety Report 7644116-5 (Version None)
Quarter: 2011Q3

REPORT INFORMATION
  Report Type: 
  Country: None (occurrence: None)
  Receive Date: 20110729
  Receipt Date: 20110719
  Transmission Date: 20111222
  Serious: Yes (Hospitalization)
  Sender: FDA-Public Use
  Company Number: SE-CELGENEUS-150-20785-11061191

PATIENT
  Sex: Male
  Weight: 86 kg

DRUGS (8)
  1. PREDNISONE [Suspect]
     Indication: MULTIPLE MYELOMA
     Route: 048
     Dates: start: 20110518, end: 20110521
  2. MELPHALAN HYDROCHLORIDE [Suspect]
     Indication: MULTIPLE MYELOMA
     Route: 048
     Dates: start: 20110518, end: 20110521
  3. ACETAMINOPHEN [Concomitant]
     Indication: PAIN
     Route: 048
     Dates: start: 20110512, end: 20110616
  4. ALLOPURINOL [Concomitant]
     Indication: GOUT
     Dosage: 300 MILLIGRAM
     Route: 048
     Dates: end: 20110615
  5. THALIDOMIDE [Suspect]
     Indication: MULTIPLE MYELOMA
     Route: 048
     Dates: start: 20110518, end: 20110608
  6. ARANESP [Concomitant]
     Route: 058
     Dates: start: 20110511, end: 20110615
  7. MORPHINE [Concomitant]
     Indication: PAIN
     Route: 048
     Dates: start: 20110512, end: 20110615
  8. ASPIRIN [Concomitant]
     Indication: PROPHYLAXIS
     Route: 048
     Dates: end: 20110615

REACTIONS (4)
  - CSF PROTEIN INCREASED [None]
  - APRAXIA [None]
  - VERTIGO [None]
  - DIZZINESS [None]
